FAERS Safety Report 24296371 (Version 3)
Quarter: 2025Q1

REPORT INFORMATION
  Report Type: Report from Study
  Country: KR (occurrence: KR)
  Receive Date: 20240909
  Receipt Date: 20250225
  Transmission Date: 20250409
  Serious: Yes (Hospitalization, Other)
  Sender: EMD SERONO INC
  Company Number: KR-Merck Healthcare KGaA-2024047322

PATIENT

DRUGS (1)
  1. SAIZEN [Suspect]
     Active Substance: SOMATROPIN
     Indication: Product used for unknown indication
     Dates: start: 20231122, end: 202409

REACTIONS (2)
  - Intracranial germ cell tumour [Unknown]
  - Pyrexia [Unknown]
